FAERS Safety Report 13102523 (Version 2)
Quarter: 2017Q1

REPORT INFORMATION
  Report Type: Spontaneous
  Country: SE (occurrence: SE)
  Receive Date: 20170110
  Receipt Date: 20170110
  Transmission Date: 20170428
  Serious: Yes (Death)
  Sender: FDA-Public Use
  Company Number: SE-TEVA-726203ISR

PATIENT
  Age: 68 Year
  Sex: Male

DRUGS (24)
  1. SERETIDE [Concomitant]
     Active Substance: FLUTICASONE PROPIONATE\SALMETEROL XINAFOATE
     Dates: start: 20140916
  2. BISOPROLOL [Concomitant]
     Active Substance: BISOPROLOL
     Dosage: 2.5 MILLIGRAM DAILY;
     Route: 048
     Dates: start: 20161201
  3. CILAXORAL [Concomitant]
     Route: 048
     Dates: start: 20161101
  4. ZOLADEX [Concomitant]
     Active Substance: GOSERELIN ACETATE
     Route: 058
     Dates: start: 20140503
  5. BISOCARD [Concomitant]
     Active Substance: BISOPROLOL
     Route: 048
     Dates: start: 20161201
  6. AERIUS [Concomitant]
     Active Substance: DESLORATADINE
     Dates: start: 20161102
  7. CEFTRIAXON [Concomitant]
     Active Substance: CEFTRIAXONE
     Route: 042
     Dates: start: 20161202
  8. FURIX [Concomitant]
     Active Substance: FUROSEMIDE
     Dosage: 6 MILLIGRAM DAILY;
     Dates: start: 20161130
  9. SAROTEN [Concomitant]
     Active Substance: AMITRIPTYLINE
     Dates: start: 20161103
  10. OMEPRAZOLE AUROBINDO [Concomitant]
     Route: 048
     Dates: start: 20161105
  11. GABAPENTIN. [Suspect]
     Active Substance: GABAPENTIN
     Indication: PROSTATE CANCER METASTATIC
     Dosage: 1800 MILLIGRAM DAILY;
     Dates: start: 20161031
  12. DUROGESIC [Concomitant]
     Active Substance: FENTANYL
     Dosage: MICROGRAM/HOUR
     Dates: start: 20161202
  13. OXYNORM [Concomitant]
     Active Substance: OXYCODONE HYDROCHLORIDE
     Route: 042
     Dates: start: 20161031
  14. MIDAZOLAM ACCORD [Concomitant]
     Dates: start: 20161101
  15. INNOHEP [Concomitant]
     Active Substance: TINZAPARIN SODIUM
     Dosage: 1400 IU (INTERNATIONAL UNIT) DAILY; INTERNATIONAL UNITS/ML
     Route: 058
     Dates: start: 20161130
  16. OXASCAND [Concomitant]
     Active Substance: OXAZEPAM
     Route: 048
     Dates: start: 20161030
  17. STESOLID [Concomitant]
     Active Substance: DIAZEPAM
     Route: 048
     Dates: start: 20161108
  18. NOVORAPID [Concomitant]
     Active Substance: INSULIN ASPART
     Dosage: 100 INTERNATIONAL UNITS/ML
     Route: 058
     Dates: start: 20161031
  19. BRICANYL [Concomitant]
     Active Substance: TERBUTALINE SULFATE
     Dates: start: 20150319
  20. ALVEDON [Concomitant]
     Active Substance: ACETAMINOPHEN
     Dosage: 443.3333 MILLIGRAM DAILY;
     Dates: start: 20161030
  21. BETAPRED [Concomitant]
     Active Substance: BETAMETHASONE SODIUM PHOSPHATE
     Route: 048
     Dates: start: 20161030
  22. KALEORID [Concomitant]
     Active Substance: POTASSIUM CHLORIDE
     Dosage: 750 MILLIGRAM DAILY;
     Dates: start: 20161130
  23. OXYNORM [Concomitant]
     Active Substance: OXYCODONE HYDROCHLORIDE
     Route: 048
     Dates: start: 20161102
  24. ENZALUTAMIDE [Concomitant]
     Active Substance: ENZALUTAMIDE

REACTIONS (1)
  - Pulmonary oedema [Fatal]

NARRATIVE: CASE EVENT DATE: 20161130
